FAERS Safety Report 6534538-8 (Version None)
Quarter: 2010Q1

REPORT INFORMATION
  Report Type: 
  Country: None (occurrence: None)
  Receive Date: 20100112
  Receipt Date: 20100101
  Transmission Date: 20100710
  Serious: Yes (Hospitalization)
  Sender: FDA-Public Use
  Company Number: US-JNJFOC-20100101754

PATIENT
  Sex: Female

DRUGS (5)
  1. TYLENOL (CAPLET) [Suspect]
  2. TYLENOL (CAPLET) [Suspect]
     Indication: DRUG USE FOR UNKNOWN INDICATION
  3. TYLENOL CHEST CONGESTION DAYTIME COOL BURST [Suspect]
     Indication: COUGH
     Dosage: ^ON A DAILY BASIS^
  4. TYLENOL CHEST CONGESTION DAYTIME COOL BURST [Suspect]
     Indication: INFLUENZA
     Dosage: ^ON A DAILY BASIS^
  5. TYLENOL CHEST CONGESTION DAYTIME COOL BURST [Suspect]
     Indication: NASOPHARYNGITIS
     Dosage: ^ON A DAILY BASIS^

REACTIONS (3)
  - LETHARGY [None]
  - PRODUCT QUALITY ISSUE [None]
  - SOMNOLENCE [None]
